FAERS Safety Report 5148234-5 (Version None)
Quarter: 2006Q4

REPORT INFORMATION
  Report Type: 
  Country: None (occurrence: None)
  Receive Date: 20060918
  Receipt Date: 20060113
  Transmission Date: 20070319
  Serious: Yes (Other)
  Sender: FDA-Public Use
  Company Number: US-JNJFOC-20060103464

PATIENT
  Age: 31 Year
  Sex: Female
  Weight: 83.9154 kg

DRUGS (6)
  1. TOPAMAX [Suspect]
     Indication: BACK PAIN
     Dosage: SEE IMAGE
     Route: 048
     Dates: start: 20051101, end: 20051201
  2. TOPAMAX [Suspect]
     Indication: MIGRAINE PROPHYLAXIS
     Dosage: SEE IMAGE
     Route: 048
     Dates: start: 20051101, end: 20051201
  3. TOPAMAX [Suspect]
     Indication: BACK PAIN
     Dosage: SEE IMAGE
     Route: 048
     Dates: start: 20060110
  4. TOPAMAX [Suspect]
     Indication: MIGRAINE PROPHYLAXIS
     Dosage: SEE IMAGE
     Route: 048
     Dates: start: 20060110
  5. WELLBUTRIN XL [Concomitant]
  6. VICODIN (VICODIN) TABLET [Concomitant]

REACTIONS (7)
  - BACK PAIN [None]
  - DEPRESSION [None]
  - FATIGUE [None]
  - HYPERSOMNIA [None]
  - MEMORY IMPAIRMENT [None]
  - MIGRAINE [None]
  - SUICIDAL IDEATION [None]
